FAERS Safety Report 5457242-6 (Version None)
Quarter: 2007Q3

REPORT INFORMATION
  Report Type: 
  Country: None (occurrence: None)
  Receive Date: 20070918
  Receipt Date: 20070907
  Transmission Date: 20080115
  Serious: Yes (Other)
  Sender: FDA-Public Use
  Company Number: US-PFIZER INC-2007062260

PATIENT
  Sex: Female
  Weight: 71.8 kg

DRUGS (1)
  1. CHANTIX [Suspect]
     Indication: SMOKING CESSATION THERAPY
     Dates: start: 20070717, end: 20070722

REACTIONS (10)
  - ABDOMINAL PAIN UPPER [None]
  - ABNORMAL DREAMS [None]
  - DIARRHOEA [None]
  - DYSPNOEA [None]
  - HYPOAESTHESIA [None]
  - HYPOVENTILATION [None]
  - JOINT STIFFNESS [None]
  - NAUSEA [None]
  - STOMACH DISCOMFORT [None]
  - WEIGHT DECREASED [None]
